FAERS Safety Report 13682903 (Version 1)
Quarter: 2017Q2

REPORT INFORMATION
  Report Type: Spontaneous
  Country: US (occurrence: US)
  Receive Date: 20170623
  Receipt Date: 20170623
  Transmission Date: 20170830
  Serious: No
  Sender: FDA-Public Use
  Company Number: US-MALLINCKRODT-T201700850

PATIENT
  Age: 52 Year
  Sex: Male

DRUGS (1)
  1. H.P. ACTHAR [Suspect]
     Active Substance: CORTICOTROPIN
     Indication: SARCOIDOSIS
     Dosage: 80 UNITS TWICE A WEEK, TUESDAY/FRIDAY
     Route: 058
     Dates: start: 20170210, end: 20170421

REACTIONS (7)
  - Sinus congestion [Not Recovered/Not Resolved]
  - Productive cough [Unknown]
  - Headache [Not Recovered/Not Resolved]
  - Fluid retention [Unknown]
  - Dyspnoea [Unknown]
  - Chest discomfort [Not Recovered/Not Resolved]
  - Blood pressure increased [Recovering/Resolving]

NARRATIVE: CASE EVENT DATE: 20170217
